FAERS Safety Report 23799242 (Version 1)
Quarter: 2024Q2

REPORT INFORMATION
  Report Type: Spontaneous
  Country: US (occurrence: US)
  Receive Date: 20240430
  Receipt Date: 20240430
  Transmission Date: 20240716
  Serious: No
  Sender: FDA-Public Use
  Company Number: US-PFIZER INC-202400095709

PATIENT
  Age: 63 Year
  Sex: Female

DRUGS (2)
  1. INLYTA [Suspect]
     Active Substance: AXITINIB
     Dosage: TAKE 1 TABLET TWICE DAILY
     Dates: start: 20240322, end: 20240329
  2. KEYTRUDA [Suspect]
     Active Substance: PEMBROLIZUMAB
     Dosage: SECOND KEYTRUDA INFUSION

REACTIONS (17)
  - Diarrhoea [Not Recovered/Not Resolved]
  - Nausea [Not Recovered/Not Resolved]
  - Headache [Not Recovered/Not Resolved]
  - Stomatitis [Not Recovered/Not Resolved]
  - Pain [Not Recovered/Not Resolved]
  - Rhinorrhoea [Not Recovered/Not Resolved]
  - Muscle spasms [Not Recovered/Not Resolved]
  - Abdominal pain upper [Not Recovered/Not Resolved]
  - Back pain [Not Recovered/Not Resolved]
  - Arthralgia [Not Recovered/Not Resolved]
  - Pain in extremity [Not Recovered/Not Resolved]
  - Polyuria [Not Recovered/Not Resolved]
  - Cough [Not Recovered/Not Resolved]
  - Aphonia [Not Recovered/Not Resolved]
  - Vision blurred [Not Recovered/Not Resolved]
  - Eating disorder [Not Recovered/Not Resolved]
  - Insomnia [Not Recovered/Not Resolved]
